FAERS Safety Report 19786832 (Version 1)
Quarter: 2021Q3

REPORT INFORMATION
  Report Type: Spontaneous
  Country: DE (occurrence: DE)
  Receive Date: 20210903
  Receipt Date: 20210903
  Transmission Date: 20211014
  Serious: Yes (Hospitalization, Other)
  Sender: FDA-Public Use
  Company Number: DE-MYLANLABS-2021M1057654

PATIENT
  Age: 71 Year
  Sex: Female

DRUGS (9)
  1. ASPIRIN. [Concomitant]
     Active Substance: ASPIRIN
     Dosage: 100 MILLIGRAM, QD,  1?0?0?0, BRAUSETABLETTEN
  2. METOPROLOL. [Concomitant]
     Active Substance: METOPROLOL
     Dosage: 47.5 MILLIGRAM, BID 1?0?1?0, RETARD?TABLETTEN
  3. ALLOPURINOL. [Concomitant]
     Active Substance: ALLOPURINOL
     Dosage: 150 MILLIGRAM, QD, TABLETTEN
  4. TORASEMID [Concomitant]
     Active Substance: TORSEMIDE
     Dosage: 10 MILLIGRAM, QD, 1?0?0?0, TABLETTEN
  5. REPATHA [Concomitant]
     Active Substance: EVOLOCUMAB
     Dosage: 140 MILLIGRAM, 140 MG/14 T?GIG, 1X, FERTIGSPRITZEN
  6. APIXABAN [Concomitant]
     Active Substance: APIXABAN
     Dosage: 2.5 MILLIGRAM, BID,  TABLETTEN
  7. CLOPIDOGREL [Concomitant]
     Active Substance: CLOPIDOGREL BISULFATE
     Dosage: 75 MILLIGRAM, QD 1?0?0?0, TABLETTEN
  8. COLECALCIFEROL [Concomitant]
     Active Substance: CHOLECALCIFEROL
     Dosage: 1 DOSAGE FORM, BIWEEKLY, 20000 IE/ALLE 2 WOCHEN, 1X, KAPSELN
  9. RAMIPRIL. [Suspect]
     Active Substance: RAMIPRIL
     Indication: PRODUCT USED FOR UNKNOWN INDICATION
     Dosage: 2.5 MILLIGRAM, QD

REACTIONS (6)
  - Chest discomfort [Recovered/Resolved]
  - Cardiovascular disorder [Recovered/Resolved]
  - Hypotension [Recovered/Resolved]
  - Circulatory collapse [Recovered/Resolved]
  - Product prescribing error [Recovered/Resolved]
  - Nausea [Recovered/Resolved]
